FAERS Safety Report 9243531 (Version 1)
Quarter: 2013Q1

REPORT INFORMATION
  Report Type: Spontaneous
  Country: US (occurrence: None)
  Receive Date: 20121123
  Receipt Date: 20121123
  Transmission Date: 20140127
  Serious: No
  Sender: FDA-Public Use
  Company Number: 360537

PATIENT
  Age: 32 Year
  Sex: Female

DRUGS (1)
  1. VICTOZA (LIRAGLUTIDE) [Suspect]
     Indication: TYPE 2 DIABETES MELLITUS
     Route: 058
     Dates: start: 201208

REACTIONS (7)
  - Nausea [None]
  - Vomiting [None]
  - Eructation [None]
  - Headache [None]
  - Diarrhoea [None]
  - Gastrointestinal disorder [None]
  - Blood glucose decreased [None]
